FAERS Safety Report 15930994 (Version 1)
Quarter: 2019Q1

REPORT INFORMATION
  Report Type: Spontaneous
  Country: US (occurrence: US)
  Receive Date: 20190116
  Receipt Date: 20190116
  Transmission Date: 20190417
  Serious: No
  Sender: FDA-Public Use
  Company Number: None

PATIENT
  Age: 65 Year
  Sex: Male

DRUGS (1)
  1. LEFLUNOMIDE TAB 20MG [Suspect]
     Active Substance: LEFLUNOMIDE
     Route: 048
     Dates: start: 201801, end: 201901

REACTIONS (1)
  - Alopecia [None]

NARRATIVE: CASE EVENT DATE: 20190116
